FAERS Safety Report 25968669 (Version 1)
Quarter: 2025Q4

REPORT INFORMATION
  Report Type: Other
  Country: GB (occurrence: GB)
  Receive Date: 20251028
  Receipt Date: 20251028
  Transmission Date: 20260117
  Serious: Yes (Other)
  Sender: STRIDES
  Company Number: None

PATIENT
  Age: 31 Year
  Sex: Female
  Weight: 75 kg

DRUGS (1)
  1. PREDNISOLONE [Suspect]
     Active Substance: PREDNISOLONE
     Indication: Asthma
     Dosage: 60MG FOR 8 DAYS THEN 10MG TAPER
     Route: 065

REACTIONS (5)
  - Brain fog [Not Recovered/Not Resolved]
  - Contusion [Not Recovered/Not Resolved]
  - Euphoric mood [Recovered/Resolved]
  - Swelling [Not Recovered/Not Resolved]
  - Headache [Not Recovered/Not Resolved]

NARRATIVE: CASE EVENT DATE: 20251006
